FAERS Safety Report 24369509 (Version 1)
Quarter: 2024Q3

REPORT INFORMATION
  Report Type: Report from Study
  Country: US (occurrence: US)
  Receive Date: 20240927
  Receipt Date: 20240927
  Transmission Date: 20241017
  Serious: No
  Sender: ROCHE
  Company Number: US-ROCHE-3483816

PATIENT
  Age: 62 Year
  Sex: Male

DRUGS (28)
  1. LUCENTIS [Suspect]
     Active Substance: RANIBIZUMAB
     Indication: Diabetic retinopathy
     Route: 031
     Dates: start: 20221027
  2. LUCENTIS [Suspect]
     Active Substance: RANIBIZUMAB
     Indication: Macular oedema
     Route: 031
     Dates: start: 20221201
  3. LUCENTIS [Suspect]
     Active Substance: RANIBIZUMAB
     Route: 031
     Dates: start: 20230126
  4. VABYSMO [Suspect]
     Active Substance: FARICIMAB-SVOA
     Indication: Diabetic retinopathy
     Route: 065
     Dates: start: 20230824
  5. VABYSMO [Suspect]
     Active Substance: FARICIMAB-SVOA
     Indication: Macular oedema
  6. AVASTIN [Suspect]
     Active Substance: BEVACIZUMAB
     Indication: Diabetic retinopathy
     Route: 065
     Dates: start: 20221110
  7. AVASTIN [Suspect]
     Active Substance: BEVACIZUMAB
     Indication: Macular oedema
     Route: 065
     Dates: start: 20220915
  8. AVASTIN [Suspect]
     Active Substance: BEVACIZUMAB
     Route: 065
     Dates: start: 20220707
  9. EYLEA [Concomitant]
     Active Substance: AFLIBERCEPT
     Dates: start: 20210304
  10. EYLEA [Concomitant]
     Active Substance: AFLIBERCEPT
     Dates: start: 20220908
  11. EYLEA [Concomitant]
     Active Substance: AFLIBERCEPT
     Dates: start: 20220728
  12. EYLEA [Concomitant]
     Active Substance: AFLIBERCEPT
     Dates: start: 20220616
  13. EYLEA [Concomitant]
     Active Substance: AFLIBERCEPT
     Dates: start: 20190829
  14. DEXCOM (UNK INGREDIENTS) [Concomitant]
  15. LEVOTHYROXINE [Concomitant]
     Active Substance: LEVOTHYROXINE\LEVOTHYROXINE SODIUM
  16. AMLODIPINE BESYLATE [Concomitant]
     Active Substance: AMLODIPINE BESYLATE
  17. TRIESENCE [Concomitant]
     Active Substance: TRIAMCINOLONE ACETONIDE
  18. PROLENSA [Concomitant]
     Active Substance: BROMFENAC SODIUM
  19. ARTIFICIAL TEARS [Concomitant]
  20. PREDNISOLONE ACETATE [Concomitant]
     Active Substance: PREDNISOLONE ACETATE
  21. BESIVANCE [Concomitant]
     Active Substance: BESIFLOXACIN
  22. LOTEMAX [Concomitant]
     Active Substance: LOTEPREDNOL ETABONATE
  23. LANTUS [Concomitant]
     Active Substance: INSULIN GLARGINE
  24. HUMALOG [Concomitant]
     Active Substance: INSULIN LISPRO
  25. GLIPIZIDE [Concomitant]
     Active Substance: GLIPIZIDE
  26. JANUMET [Concomitant]
     Active Substance: METFORMIN HYDROCHLORIDE\SITAGLIPTIN PHOSPHATE
  27. BENICAR [Concomitant]
     Active Substance: OLMESARTAN MEDOXOMIL
  28. LIPITOR [Concomitant]
     Active Substance: ATORVASTATIN CALCIUM

REACTIONS (3)
  - Off label use [Unknown]
  - Off label use [Unknown]
  - No adverse event [Unknown]
